FAERS Safety Report 13831909 (Version 1)
Quarter: 2017Q3

REPORT INFORMATION
  Report Type: Spontaneous
  Country: US (occurrence: US)
  Receive Date: 20170803
  Receipt Date: 20170803
  Transmission Date: 20171127
  Serious: No
  Sender: FDA-Public Use
  Company Number: US-ROCHE-673193

PATIENT
  Age: 67 Year
  Sex: Female
  Weight: 64.4 kg

DRUGS (4)
  1. CALCIUM [Concomitant]
     Active Substance: CALCIUM
     Indication: BONE DISORDER
     Route: 048
  2. CRANBERRY TABLETS [Concomitant]
     Indication: URINARY TRACT DISORDER
     Dosage: FREQUENCY: PRN
     Route: 048
  3. VITAMIN D [Concomitant]
     Active Substance: CHOLECALCIFEROL
     Indication: BONE DISORDER
     Route: 048
  4. BONIVA [Suspect]
     Active Substance: IBANDRONATE SODIUM
     Indication: OSTEOPOROSIS
     Dosage: DATE OF USE REPORTED AS: ONE AND A HALF YEARS
     Route: 048
     Dates: start: 20080429, end: 20091201

REACTIONS (1)
  - Tooth fracture [Unknown]

NARRATIVE: CASE EVENT DATE: 20090901
